FAERS Safety Report 14923744 (Version 1)
Quarter: 2018Q2

REPORT INFORMATION
  Report Type: Report from Study
  Country: US (occurrence: US)
  Receive Date: 20180522
  Receipt Date: 20180522
  Transmission Date: 20180711
  Serious: Yes (Death, Life-Threatening, Other)
  Sender: FDA-Public Use
  Company Number: US-ACCORD-067261

PATIENT
  Age: 53 Year
  Sex: Female
  Weight: 82 kg

DRUGS (8)
  1. AMITRIPTYLINE [Suspect]
     Active Substance: AMITRIPTYLINE
  2. MORPHINE [Suspect]
     Active Substance: MORPHINE
  3. CITALOPRAM [Suspect]
     Active Substance: CITALOPRAM HYDROBROMIDE
  4. TEMAZEPAM. [Suspect]
     Active Substance: TEMAZEPAM
  5. QUETIAPINE. [Suspect]
     Active Substance: QUETIAPINE
  6. NORDAZEPAM [Suspect]
     Active Substance: NORDAZEPAM
  7. MIRTAZAPINE. [Suspect]
     Active Substance: MIRTAZAPINE
  8. DIAZEPAM. [Suspect]
     Active Substance: DIAZEPAM

REACTIONS (2)
  - Accidental overdose [Fatal]
  - Toxicity to various agents [Fatal]
